FAERS Safety Report 25344794 (Version 1)
Quarter: 2025Q2

REPORT INFORMATION
  Report Type: Report from Study
  Country: RU (occurrence: RU)
  Receive Date: 20250522
  Receipt Date: 20250522
  Transmission Date: 20250717
  Serious: Yes (Death, Hospitalization, Other)
  Sender: ABBVIE
  Company Number: RU-ABBVIE-6290254

PATIENT
  Age: 54 Year
  Sex: Male

DRUGS (2)
  1. VENETOCLAX [Suspect]
     Active Substance: VENETOCLAX
     Indication: Chronic lymphocytic leukaemia
     Route: 048
     Dates: start: 2024
  2. RITUXIMAB [Concomitant]
     Active Substance: RITUXIMAB
     Indication: Chronic lymphocytic leukaemia
     Route: 065
     Dates: start: 2024

REACTIONS (5)
  - Pneumonia [Fatal]
  - Lymphocytosis [Unknown]
  - Leukocytosis [Unknown]
  - Lymphadenopathy [Unknown]
  - Chronic lymphocytic leukaemia [Unknown]
